FAERS Safety Report 7658158-7 (Version None)
Quarter: 2011Q3

REPORT INFORMATION
  Report Type: 
  Country: None (occurrence: None)
  Receive Date: 20110805
  Receipt Date: 20110728
  Transmission Date: 20111222
  Serious: Yes (Other)
  Sender: FDA-Public Use
  Company Number: PHHY2011GB69965

PATIENT
  Age: 78 Year
  Sex: Male

DRUGS (4)
  1. LATANOPROST [Suspect]
     Indication: INTRAOCULAR PRESSURE TEST
  2. ATROPINE [Suspect]
     Indication: EYE DISORDER
  3. PILOCARPINE [Suspect]
     Indication: INTRAOCULAR PRESSURE TEST
  4. ACETAZOLAMIDE [Suspect]
     Indication: EYE DISORDER

REACTIONS (3)
  - INTRAOCULAR PRESSURE INCREASED [None]
  - ANTERIOR CHAMBER DISORDER [None]
  - DRUG INEFFECTIVE [None]
